FAERS Safety Report 9174418 (Version 1)
Quarter: 2013Q1

REPORT INFORMATION
  Report Type: Spontaneous
  Country: US (occurrence: US)
  Receive Date: 20130320
  Receipt Date: 20130320
  Transmission Date: 20140127
  Serious: No
  Sender: FDA-Public Use
  Company Number: US-MYLANLABS-2012S1004168

PATIENT
  Sex: Female
  Weight: 79.83 kg

DRUGS (1)
  1. ESTRADIOL TRANSDERMAL SYSTEM, USP [Suspect]
     Route: 062

REACTIONS (2)
  - Application site rash [Recovered/Resolved]
  - Back pain [Recovered/Resolved]
